FAERS Safety Report 7800479-9 (Version None)
Quarter: 2011Q4

REPORT INFORMATION
  Report Type: 
  Country: None (occurrence: None)
  Receive Date: 20111004
  Receipt Date: 20110920
  Transmission Date: 20120403
  Serious: Yes (Hospitalization)
  Sender: FDA-Public Use
  Company Number: GGEL20110901177

PATIENT
  Age: 81 Year
  Sex: Male

DRUGS (13)
  1. PIPERACILLIN AND TAZOBACTUM (PIPERACILLIN, TAZOBACTUM) (PIPERACILLIN, [Concomitant]
  2. CITALOPRAM HYDROBROMIDE [Concomitant]
  3. RASAGILINE (RASAGILINE) (RASAGILINE) [Concomitant]
  4. CALCIUM AND COLECALCIIFEROL (CALCIUM CARBONATE, CALCIUM PHOSPHATE, COL [Concomitant]
  5. DALTEPARIN (DALTEPARIN) (DALTEPARIN) [Concomitant]
  6. ROPINIROLE [Suspect]
     Indication: PARKINSON'S DISEASE
     Dosage: 16 MILLIGRAM, 1 IN 1 D, ORAL USE
     Route: 048
     Dates: start: 20070914
  7. MIDODRINE (MIDODRINE) (MIDODRINE) [Concomitant]
  8. MOVICOL (MACROGOL 3350, POLYETHYLENE GLYCOL 3350, POTASSIUM CHLORIDE, [Concomitant]
  9. OMEPRAZOLE [Concomitant]
  10. PARACETAMOL (PARACETAMOL) (PARACETAMOL) [Concomitant]
  11. ALENDRONIC ACID (ALENDRONIC ACID) (ALENDRONIC ACID) [Concomitant]
  12. FINASTERIDE (FINASTERIDE) (FINASTERIDE) [Concomitant]
  13. STALEVO (CARBIDOPA, ENTACAPONE, LEVODOPA) (CARBIDOPA, ENTACAPONE, LEVO [Concomitant]

REACTIONS (1)
  - NEUROLEPTIC MALIGNANT SYNDROME [None]
